FAERS Safety Report 4441931-6 (Version None)
Quarter: 2004Q3

REPORT INFORMATION
  Report Type: 
  Country: None (occurrence: None)
  Receive Date: 20040903
  Receipt Date: 20040521
  Transmission Date: 20050211
  Serious: Yes (Other)
  Sender: FDA-Public Use
  Company Number: 2004UW02137

PATIENT
  Age: 65 Year
  Sex: Male
  Weight: 92.9874 kg

DRUGS (5)
  1. CRESTOR [Suspect]
     Indication: BLOOD CHOLESTEROL INCREASED
     Dosage: 10 MG PO
     Route: 048
     Dates: start: 20030601
  2. GLUCOPHAGE [Concomitant]
  3. GLUCOTROL [Concomitant]
  4. LOTENSIN [Concomitant]
  5. MULTI-VITAMINS [Concomitant]

REACTIONS (3)
  - ABASIA [None]
  - MUSCULAR WEAKNESS [None]
  - MYALGIA [None]
